FAERS Safety Report 23411183 (Version 1)
Quarter: 2024Q1

REPORT INFORMATION
  Report Type: Spontaneous
  Country: US (occurrence: None)
  Receive Date: 20240117
  Receipt Date: 20240117
  Transmission Date: 20240409
  Serious: No
  Sender: FDA-Public Use
  Company Number: None

PATIENT
  Age: 46 Year
  Sex: Female

DRUGS (1)
  1. AMBRISENTAN [Suspect]
     Active Substance: AMBRISENTAN
     Indication: Pulmonary arterial hypertension
     Dosage: FREQUENCY : DAILY;?
     Route: 048
     Dates: start: 20190131

REACTIONS (5)
  - Nausea [None]
  - Alcohol abuse [None]
  - Drug abuse [None]
  - Hypoxia [None]
  - Right ventricular dysfunction [None]

NARRATIVE: CASE EVENT DATE: 20240115
